FAERS Safety Report 20420278 (Version 3)
Quarter: 2022Q1

REPORT INFORMATION
  Report Type: Spontaneous
  Country: GB (occurrence: GB)
  Receive Date: 20220203
  Receipt Date: 20220215
  Transmission Date: 20220423
  Serious: Yes (Other)
  Sender: FDA-Public Use
  Company Number: GB-BAYER-2022A017189

PATIENT

DRUGS (1)
  1. EYLEA [Suspect]
     Active Substance: AFLIBERCEPT
     Indication: Neovascular age-related macular degeneration
     Dosage: TOTAL DOSE AND LAST DOSE PRIOR THE EVENT WERE NOT REPORTED
     Route: 031

REACTIONS (1)
  - Deep vein thrombosis [Unknown]
